FAERS Safety Report 16225547 (Version 3)
Quarter: 2021Q2

REPORT INFORMATION
  Report Type: Spontaneous
  Country: US (occurrence: US)
  Receive Date: 20190422
  Receipt Date: 20210629
  Transmission Date: 20210716
  Serious: Yes (Death, Other)
  Sender: FDA-Public Use
  Company Number: US-ASTRAZENECA-2018SF66118

PATIENT
  Age: 67 Year
  Sex: Female
  Weight: 52.2 kg

DRUGS (26)
  1. NEXIUM [Suspect]
     Active Substance: ESOMEPRAZOLE MAGNESIUM
     Indication: GASTROOESOPHAGEAL REFLUX DISEASE
     Route: 048
     Dates: start: 2005, end: 2013
  2. METOLAZONE. [Concomitant]
     Active Substance: METOLAZONE
  3. POTASSIUM CHLORIDE. [Concomitant]
     Active Substance: POTASSIUM CHLORIDE
  4. RANITIDINE. [Concomitant]
     Active Substance: RANITIDINE
  5. INSULIN [Concomitant]
     Active Substance: INSULIN NOS
  6. PREDNISONE. [Concomitant]
     Active Substance: PREDNISONE
  7. CLONAZEPAM. [Concomitant]
     Active Substance: CLONAZEPAM
  8. LISINOPRIL. [Concomitant]
     Active Substance: LISINOPRIL
  9. BUMETANIDE. [Concomitant]
     Active Substance: BUMETANIDE
  10. FERROUS SULFATE. [Concomitant]
     Active Substance: FERROUS SULFATE
  11. VITAMIN D [Concomitant]
     Active Substance: VITAMIN D NOS
  12. OMEPRAZOLE. [Suspect]
     Active Substance: OMEPRAZOLE
     Dosage: GENERIC
     Route: 065
  13. CARVEDILOL. [Concomitant]
     Active Substance: CARVEDILOL
  14. FUROSEMIDE. [Concomitant]
     Active Substance: FUROSEMIDE
  15. TORSEMIDE. [Concomitant]
     Active Substance: TORSEMIDE
  16. AMLODIPINE BESYLATE. [Concomitant]
     Active Substance: AMLODIPINE BESYLATE
  17. HYDROCODONE/PARACETAMOL [Concomitant]
     Active Substance: ACETAMINOPHEN\HYDROCODONE BITARTRATE
  18. WARFARIN SODIUM. [Concomitant]
     Active Substance: WARFARIN SODIUM
  19. NOVOLIN NOS [Concomitant]
     Active Substance: INSULIN HUMAN
  20. VITAMIN C [Concomitant]
     Active Substance: ASCORBIC ACID
  21. NEXIUM [Suspect]
     Active Substance: ESOMEPRAZOLE MAGNESIUM
     Indication: GASTROOESOPHAGEAL REFLUX DISEASE
     Dosage: 40.0MG UNKNOWN
     Route: 048
     Dates: start: 20100117
  22. AZITHROMYCIN ANHYDROUS. [Concomitant]
     Active Substance: AZITHROMYCIN ANHYDROUS
  23. SIMVASTATIN. [Concomitant]
     Active Substance: SIMVASTATIN
  24. HYDRALAZINE [Concomitant]
     Active Substance: HYDRALAZINE HYDROCHLORIDE
  25. AMOXICILLIN. [Concomitant]
     Active Substance: AMOXICILLIN
  26. METOCLOPRAMIDE. [Concomitant]
     Active Substance: METOCLOPRAMIDE

REACTIONS (10)
  - Renal injury [Unknown]
  - Staphylococcal bacteraemia [Fatal]
  - End stage renal disease [Unknown]
  - Mesenteric arterial occlusion [Fatal]
  - Endocarditis [Fatal]
  - Rebound acid hypersecretion [Unknown]
  - Shock [Fatal]
  - Metabolic acidosis [Fatal]
  - Chronic kidney disease [Not Recovered/Not Resolved]
  - Renal failure [Unknown]

NARRATIVE: CASE EVENT DATE: 2012
